FAERS Safety Report 10026242 (Version 1)
Quarter: 2014Q1

REPORT INFORMATION
  Report Type: Spontaneous
  Country: US (occurrence: US)
  Receive Date: 20140320
  Receipt Date: 20140320
  Transmission Date: 20141002
  Serious: No
  Sender: FDA-Public Use
  Company Number: US-ALLERGAN-1313533US

PATIENT
  Age: 91 Year
  Sex: Female

DRUGS (3)
  1. LUMIGAN 0.01% [Suspect]
     Indication: GLAUCOMA
     Dosage: UNK
     Route: 047
     Dates: start: 2010
  2. AZOPT [Suspect]
     Indication: GLAUCOMA
     Dosage: UNK
     Dates: start: 2012
  3. MEDICATION NOS [Concomitant]
     Indication: PRODUCT USED FOR UNKNOWN INDICATION

REACTIONS (5)
  - Blepharal pigmentation [Not Recovered/Not Resolved]
  - Hair growth abnormal [Not Recovered/Not Resolved]
  - Asthenia [Unknown]
  - Hair texture abnormal [Not Recovered/Not Resolved]
  - Erythema of eyelid [Not Recovered/Not Resolved]
